FAERS Safety Report 21485681 (Version 1)
Quarter: 2022Q4

REPORT INFORMATION
  Report Type: Spontaneous
  Country: US (occurrence: US)
  Receive Date: 20221020
  Receipt Date: 20221020
  Transmission Date: 20230113
  Serious: Yes (Hospitalization, Other)
  Sender: FDA-Public Use
  Company Number: US-GLAXOSMITHKLINE-US2022149710

PATIENT

DRUGS (1)
  1. MEPRON [Suspect]
     Active Substance: ATOVAQUONE
     Indication: Systemic lupus erythematosus
     Dosage: UNK

REACTIONS (6)
  - Cardiac failure congestive [Unknown]
  - Atrial fibrillation [Unknown]
  - Lung disorder [Unknown]
  - Nephropathy [Unknown]
  - Product use in unapproved indication [Unknown]
  - Product prescribing issue [Unknown]
